FAERS Safety Report 11531061 (Version 1)
Quarter: 2015Q3

REPORT INFORMATION
  Report Type: Spontaneous
  Country: US (occurrence: US)
  Receive Date: 20150903
  Receipt Date: 20150903
  Transmission Date: 20151125
  Serious: Yes (Other)
  Sender: FDA-Public Use
  Company Number: US-ELI_LILLY_AND_COMPANY-US201211002679

PATIENT
  Sex: Female

DRUGS (9)
  1. CYMBALTA [Interacting]
     Active Substance: DULOXETINE HYDROCHLORIDE
     Dosage: 60 MG, QD
  2. GABAPENTIN. [Interacting]
     Active Substance: GABAPENTIN
  3. CYMBALTA [Interacting]
     Active Substance: DULOXETINE HYDROCHLORIDE
     Dosage: 30 MG, BID
  4. CYMBALTA [Interacting]
     Active Substance: DULOXETINE HYDROCHLORIDE
     Dosage: 30 MG, Q3D
     Dates: end: 201208
  5. CYMBALTA [Interacting]
     Active Substance: DULOXETINE HYDROCHLORIDE
     Dosage: 120 MG, QD
  6. CYMBALTA [Interacting]
     Active Substance: DULOXETINE HYDROCHLORIDE
     Dosage: 30 MG, QOD
  7. LEXAPRO [Concomitant]
     Active Substance: ESCITALOPRAM OXALATE
  8. CYMBALTA [Suspect]
     Active Substance: DULOXETINE HYDROCHLORIDE
     Indication: DEPRESSION
     Dosage: 30 MG, QD
     Dates: start: 200910
  9. CYMBALTA [Interacting]
     Active Substance: DULOXETINE HYDROCHLORIDE
     Dosage: 30 MG, QD

REACTIONS (13)
  - Suicide attempt [Unknown]
  - Oedema [Unknown]
  - Anxiety [Unknown]
  - Dyspnoea [Unknown]
  - Suicidal ideation [Unknown]
  - Panic attack [Unknown]
  - Palpitations [Unknown]
  - Upper limb fracture [Unknown]
  - Drug interaction [Recovered/Resolved]
  - Mental impairment [Unknown]
  - Balance disorder [Unknown]
  - Mobility decreased [Unknown]
  - Fall [Unknown]
